FAERS Safety Report 15172265 (Version 1)
Quarter: 2018Q3

REPORT INFORMATION
  Report Type: Spontaneous
  Country: JP (occurrence: JP)
  Receive Date: 20180720
  Receipt Date: 20180720
  Transmission Date: 20181010
  Serious: Yes (Other)
  Sender: FDA-Public Use
  Company Number: JP-PFIZER INC-2018283068

PATIENT
  Sex: Female

DRUGS (2)
  1. ZITHROMAC 250MG [Suspect]
     Active Substance: AZITHROMYCIN DIHYDRATE
     Indication: OROPHARYNGEAL PAIN
     Dosage: 500 MG, 1X/DAY
     Route: 048
     Dates: start: 20180710, end: 20180710
  2. LOXONIN [Concomitant]
     Active Substance: LOXOPROFEN SODIUM
     Indication: OROPHARYNGEAL PAIN
     Dosage: UNK UNK, 3X/DAY
     Route: 048

REACTIONS (13)
  - Gastroenteritis viral [Unknown]
  - Sputum discoloured [Unknown]
  - Vomiting projectile [Unknown]
  - Gastroenteritis norovirus [Unknown]
  - Melaena [Unknown]
  - Nausea [Unknown]
  - Pharyngitis [Unknown]
  - Product use in unapproved indication [Unknown]
  - Feeling cold [Unknown]
  - Somnolence [Unknown]
  - Abdominal pain [Unknown]
  - Abdominal pain upper [Unknown]
  - Diarrhoea [Unknown]

NARRATIVE: CASE EVENT DATE: 201807
